FAERS Safety Report 9237937 (Version 1)
Quarter: 2013Q1

REPORT INFORMATION
  Report Type: Spontaneous
  Country: US (occurrence: None)
  Receive Date: 20121107
  Receipt Date: 20121107
  Transmission Date: 20140127
  Serious: No
  Sender: FDA-Public Use
  Company Number: 2012HGS-003726

PATIENT
  Age: 50 Year
  Sex: Female
  Weight: 109.77 kg

DRUGS (7)
  1. BENLYSTA [Suspect]
     Indication: SYSTEMIC LUPUS ERYTHEMATOSUS
     Dosage: 1 IN 28 D, INTRAVENOUS DRIP
     Dates: start: 20120504
  2. PLAQUENIL (HYDROXYCHLOROQUINE SULFATE) / ORAL / TABLET, FILM COATED / 200 MILLIGRAM(S) [Concomitant]
  3. LYRICA (PREGABALIN) [Concomitant]
  4. VITAMIN B12 (CYANOCOBALAMIN) [Concomitant]
  5. FOLIC ACID (FOLIC ACID) [Concomitant]
  6. MULTIVITAMIN (VIGRAN) (ERGOCALCIFEROL, ASCORBIC ACID, PYRIDOXINE HYDROCHLORIDE, THIAMINE HYDROCHLORIDE,  RETINOL, RIBOFLAVIN, NICOTINAMIDE, CALCIUM PANTOTHENATE) [Concomitant]
  7. HYDROCHLOROTHIAZIDE (HYDROCHLOROTHIAZIDE) [Concomitant]

REACTIONS (5)
  - Abdominal pain upper [None]
  - Pain [None]
  - Weight decreased [None]
  - Vomiting [None]
  - Nausea [None]
